FAERS Safety Report 6997012-0 (Version None)
Quarter: 2010Q3

REPORT INFORMATION
  Report Type: 
  Country: None (occurrence: None)
  Receive Date: 20100918
  Receipt Date: 20091123
  Transmission Date: 20110219
  Serious: No
  Sender: FDA-Public Use
  Company Number: US-WYE-H10774709

PATIENT
  Sex: Female

DRUGS (9)
  1. PRISTIQ [Suspect]
     Indication: DEPRESSION
     Route: 048
     Dates: start: 20090724
  2. PRISTIQ [Suspect]
     Indication: AGITATION
  3. DARVOCET-N 100 [Concomitant]
     Dosage: 100 AS NEEDED
     Route: 065
  4. DILTIAZEM [Concomitant]
     Dosage: 240 MG (FREQUENCY UNKNOWN)
     Route: 065
  5. OMEPRAZOLE [Concomitant]
  6. HYDROCHLOROTHIAZIDE [Concomitant]
     Dosage: UNKNOWN
     Route: 065
  7. SUCRALFATE [Concomitant]
     Dosage: UNKNOWN
     Route: 065
  8. INSULIN [Concomitant]
     Dosage: UNKNOWN
     Route: 065
  9. LISINOPRIL [Concomitant]
     Dosage: 20 MG
     Route: 065

REACTIONS (2)
  - CONDITION AGGRAVATED [None]
  - DIABETES MELLITUS [None]
